FAERS Safety Report 9569836 (Version 2)
Quarter: 2013Q4

REPORT INFORMATION
  Report Type: Spontaneous
  Country: US (occurrence: US)
  Receive Date: 20130930
  Receipt Date: 20131202
  Transmission Date: 20140711
  Serious: No
  Sender: FDA-Public Use
  Company Number: US-AMGEN-USASP2013065435

PATIENT
  Age: 71 Year
  Sex: Female
  Weight: 62.59 kg

DRUGS (2)
  1. ENBREL [Suspect]
     Indication: PSORIATIC ARTHROPATHY
     Dosage: 50 MG, QWK
     Route: 058
     Dates: start: 20010901
  2. METHOTREXATE [Concomitant]
     Indication: PSORIASIS
     Dosage: 25-5 MG, QWK
     Route: 048
     Dates: start: 20110602

REACTIONS (6)
  - Memory impairment [Not Recovered/Not Resolved]
  - Epistaxis [Recovering/Resolving]
  - Night sweats [Recovering/Resolving]
  - Dizziness [Recovering/Resolving]
  - Palpitations [Recovering/Resolving]
  - Neuralgia [Recovering/Resolving]
